FAERS Safety Report 7204721-7 (Version None)
Quarter: 2010Q4

REPORT INFORMATION
  Report Type: 
  Country: None (occurrence: None)
  Receive Date: 20101217
  Receipt Date: 20101207
  Transmission Date: 20110411
  Serious: Yes (Other)
  Sender: FDA-Public Use
  Company Number: 023409

PATIENT
  Sex: Female

DRUGS (3)
  1. LACOSAMIDE [Suspect]
     Indication: COMPLEX PARTIAL SEIZURES
     Dosage: (100 MG BID)
  2. OXCARBAZEPINE [Concomitant]
  3. KLONOPIN [Concomitant]

REACTIONS (2)
  - STATUS EPILEPTICUS [None]
  - WEIGHT INCREASED [None]
